FAERS Safety Report 9468847 (Version 2)
Quarter: 2013Q3

REPORT INFORMATION
  Report Type: Spontaneous
  Country: US (occurrence: None)
  Receive Date: 20130816
  Receipt Date: 20130828
  Transmission Date: 20140515
  Serious: Yes (Other)
  Sender: FDA-Public Use
  Company Number: JPI-P-034397

PATIENT
  Age: 21 Year
  Sex: Female
  Weight: 111.13 kg

DRUGS (8)
  1. XYREM [Suspect]
     Indication: INSOMNIA
     Dosage: 4.5 GM (2.25 GM,2 IN 1 D),ORAL
     Route: 048
     Dates: start: 20130719
  2. ASENAPINE [Concomitant]
  3. FLUOXETINE [Concomitant]
  4. VILAZODONE [Concomitant]
  5. LAMOTRIGINE [Concomitant]
  6. LEVOTHYROXINE [Concomitant]
  7. ARMOUR THYROID [Concomitant]
  8. LISDEXAMFETAMINE DIMESYLATE [Concomitant]

REACTIONS (8)
  - Headache [None]
  - Self-injurious ideation [None]
  - Anxiety [None]
  - Headache [None]
  - Stress [None]
  - Violence-related symptom [None]
  - Negative thoughts [None]
  - Anxiety [None]
